FAERS Safety Report 5543387-9 (Version None)
Quarter: 2007Q4

REPORT INFORMATION
  Report Type: 
  Country: None (occurrence: None)
  Receive Date: 20071206
  Receipt Date: 20071126
  Transmission Date: 20080405
  Serious: Yes (Hospitalization, Other)
  Sender: FDA-Public Use
  Company Number: TPA2007A02408

PATIENT
  Age: 60 Year
  Sex: Female
  Weight: 77.1115 kg

DRUGS (5)
  1. ACTOS [Suspect]
     Indication: TYPE 2 DIABETES MELLITUS
     Dosage: 30 MG, 1 IN 1 D, PER ORAL
     Route: 048
     Dates: start: 20030101
  2. AVAPRO [Concomitant]
  3. ZOCOR [Concomitant]
  4. ZETIA [Concomitant]
  5. VYTORIN [Concomitant]

REACTIONS (9)
  - FALL [None]
  - FIBULA FRACTURE [None]
  - GREENSTICK FRACTURE [None]
  - HAND FRACTURE [None]
  - HUMERUS FRACTURE [None]
  - JOINT DISLOCATION [None]
  - RADIUS FRACTURE [None]
  - TIBIA FRACTURE [None]
  - ULNA FRACTURE [None]
